FAERS Safety Report 8510421-3 (Version None)
Quarter: 2012Q3

REPORT INFORMATION
  Report Type: 
  Country: None (occurrence: None)
  Receive Date: 20120714
  Receipt Date: 20120710
  Transmission Date: 20120928
  Serious: Yes (Life-Threatening, Other)
  Sender: FDA-Public Use
  Company Number: PHHY2012FR059917

PATIENT
  Sex: Female

DRUGS (9)
  1. LASIX [Suspect]
     Dosage: 1 DF, QD
     Route: 048
  2. KETOPROFEN [Suspect]
     Dosage: 1 DF, BID
     Route: 048
     Dates: start: 20120618
  3. CEFTRIAXONE [Concomitant]
  4. SPIRONOLACTONE [Concomitant]
     Dosage: 50 MG, QD
     Dates: start: 20120618
  5. LOSARTAN POTASSIUM [Suspect]
     Indication: HYPERTENSION
     Dosage: 100 MG, QD
     Route: 048
     Dates: start: 20120618
  6. VANCOMYCIN HCL [Suspect]
     Indication: DEVICE RELATED INFECTION
     Dosage: 1 G, TID
     Route: 042
     Dates: start: 20120518, end: 20120618
  7. GENTAMICIN [Suspect]
     Dosage: 320 MG, QD
     Route: 048
     Dates: start: 20120518, end: 20120618
  8. TRAMADOL HCL [Concomitant]
     Dates: start: 20120618
  9. SITAGLIPTIN [Concomitant]
     Dates: start: 20120618

REACTIONS (10)
  - DRUG ADMINISTRATION ERROR [None]
  - ANURIA [None]
  - BODY TEMPERATURE INCREASED [None]
  - RENAL TUBULAR NECROSIS [None]
  - OLIGURIA [None]
  - BLOOD PRESSURE INCREASED [None]
  - RENAL FAILURE ACUTE [None]
  - WEIGHT INCREASED [None]
  - DRUG INTERACTION [None]
  - OEDEMA PERIPHERAL [None]
